FAERS Safety Report 17898789 (Version 4)
Quarter: 2020Q3

REPORT INFORMATION
  Report Type: Spontaneous
  Country: US (occurrence: US)
  Receive Date: 20200616
  Receipt Date: 20200722
  Transmission Date: 20201103
  Serious: Yes (Hospitalization, Other)
  Sender: FDA-Public Use
  Company Number: US-ELI_LILLY_AND_COMPANY-US202006003108

PATIENT
  Age: 4 Year
  Sex: Male
  Weight: 18 kg

DRUGS (10)
  1. MULTIVITAMIN IRON [Concomitant]
     Indication: PRODUCT USED FOR UNKNOWN INDICATION
  2. ZOFRAN [Concomitant]
     Active Substance: ONDANSETRON HYDROCHLORIDE
     Indication: PRODUCT USED FOR UNKNOWN INDICATION
     Dosage: 0.5 DOSAGE FORM, EVERY 8 HRS
     Route: 048
  3. LETAIRIS [Suspect]
     Active Substance: AMBRISENTAN
     Indication: PULMONARY ARTERIAL HYPERTENSION
     Dosage: 1 MG, DAILY
     Route: 048
     Dates: start: 20190409
  4. LETAIRIS [Suspect]
     Active Substance: AMBRISENTAN
     Dosage: 0.5 MG, DAILY
     Route: 048
  5. AMLODIPINE [Concomitant]
     Active Substance: AMLODIPINE BESYLATE
     Indication: PULMONARY ARTERIAL HYPERTENSION
     Dosage: 4 ML, BID
     Route: 048
     Dates: start: 201703
  6. TADALAFIL. [Suspect]
     Active Substance: TADALAFIL
     Indication: PULMONARY ARTERIAL HYPERTENSION
     Dosage: 3 ML, DAILY
     Route: 048
     Dates: start: 20170320
  7. TADALAFIL. [Suspect]
     Active Substance: TADALAFIL
     Dosage: 15 MG, UNKNOWN
     Route: 048
     Dates: start: 20190917
  8. REMODULIN [Suspect]
     Active Substance: TREPROSTINIL
     Indication: PULMONARY ARTERIAL HYPERTENSION
     Dosage: 0.167 UG/KG, DAILY
     Route: 058
     Dates: start: 20170327
  9. PLO GEL MEDIFLO [Concomitant]
     Active Substance: LECITHIN\POLOXAMER 407
     Indication: PRODUCT USED FOR UNKNOWN INDICATION
     Dosage: 0.2 ML, PRN
     Route: 061
  10. LETAIRIS [Suspect]
     Active Substance: AMBRISENTAN
     Dosage: 0.5 MG, DAILY
     Route: 048
     Dates: start: 20190411

REACTIONS (5)
  - Vomiting [Unknown]
  - Off label use [Unknown]
  - Viral infection [Recovered/Resolved]
  - Dehydration [Recovered/Resolved]
  - Testicular retraction [Not Recovered/Not Resolved]

NARRATIVE: CASE EVENT DATE: 20200102
